FAERS Safety Report 18821329 (Version 2)
Quarter: 2022Q1

REPORT INFORMATION
  Report Type: Spontaneous
  Country: GT (occurrence: GT)
  Receive Date: 20210201
  Receipt Date: 20220105
  Transmission Date: 20220423
  Serious: Yes (Death, Other)
  Sender: FDA-Public Use
  Company Number: GT-PFIZER INC-2021074496

PATIENT
  Age: 73 Year
  Sex: Female

DRUGS (1)
  1. XELJANZ [Suspect]
     Active Substance: TOFACITINIB CITRATE
     Dosage: UNK

REACTIONS (4)
  - Death [Fatal]
  - Spinal fracture [Unknown]
  - Fall [Unknown]
  - Back pain [Unknown]
